FAERS Safety Report 22285325 (Version 1)
Quarter: 2023Q2

REPORT INFORMATION
  Report Type: Spontaneous
  Country: US (occurrence: None)
  Receive Date: 20230503
  Receipt Date: 20230503
  Transmission Date: 20230722
  Serious: No
  Sender: FDA-Public Use
  Company Number: None

PATIENT
  Age: 70 Year
  Sex: Male
  Weight: 62.6 kg

DRUGS (7)
  1. ATORVASTATIN [Suspect]
     Active Substance: ATORVASTATIN
     Route: 048
  2. VALSARTAN [Suspect]
     Active Substance: VALSARTAN
  3. DOXAZOSIN [Suspect]
     Active Substance: DOXAZOSIN MESYLATE
  4. ASPIRIN [Concomitant]
     Active Substance: ASPIRIN
  5. UNSPECIFIED INGREDIENT [Concomitant]
     Active Substance: UNSPECIFIED INGREDIENT
  6. TYLENOL [Concomitant]
     Active Substance: ACETAMINOPHEN
  7. ROLAIDS [Concomitant]
     Active Substance: CALCIUM CARBONATE\MAGNESIUM HYDROXIDE

REACTIONS (4)
  - Abnormal weight gain [None]
  - Vision blurred [None]
  - Arthralgia [None]
  - Visual impairment [None]

NARRATIVE: CASE EVENT DATE: 20200301
